FAERS Safety Report 18574637 (Version 3)
Quarter: 2025Q2

REPORT INFORMATION
  Report Type: Spontaneous
  Country: US (occurrence: US)
  Receive Date: 20201203
  Receipt Date: 20250425
  Transmission Date: 20250716
  Serious: Yes (Other)
  Sender: RANBAXY
  Company Number: US-SUN PHARMACEUTICAL INDUSTRIES LTD-2020R1-269635

PATIENT
  Age: 34 Year
  Sex: Female

DRUGS (10)
  1. ACETAMINOPHEN [Suspect]
     Active Substance: ACETAMINOPHEN
     Indication: Analgesic therapy
     Dosage: 650 MILLIGRAM, QID
     Route: 048
  2. ACETAMINOPHEN [Suspect]
     Active Substance: ACETAMINOPHEN
     Route: 048
  3. OXYCODONE [Suspect]
     Active Substance: OXYCODONE
     Indication: Analgesic therapy
     Dosage: 5 MILLIGRAM, 6DOSE/DAY
     Route: 065
  4. OXYCODONE [Suspect]
     Active Substance: OXYCODONE
     Dosage: 10 MILLIGRAM, 6DOSE/DAY
     Route: 065
  5. LORAZEPAM [Suspect]
     Active Substance: LORAZEPAM
     Indication: Product used for unknown indication
     Route: 042
  6. FENTANYL [Suspect]
     Active Substance: FENTANYL
     Indication: Product used for unknown indication
     Route: 065
  7. KETAMINE [Concomitant]
     Active Substance: KETAMINE
     Indication: Analgesic therapy
     Route: 065
  8. KETAMINE [Concomitant]
     Active Substance: KETAMINE
     Route: 065
  9. KETAMINE [Concomitant]
     Active Substance: KETAMINE
     Route: 065
  10. GABAPENTIN [Concomitant]
     Active Substance: GABAPENTIN
     Indication: Analgesic therapy
     Dosage: 600 MILLIGRAM, QID
     Route: 065

REACTIONS (2)
  - Exposure during pregnancy [Unknown]
  - Live birth [Unknown]
